FAERS Safety Report 11938102 (Version 1)
Quarter: 2016Q1

REPORT INFORMATION
  Report Type: Spontaneous
  Country: US (occurrence: None)
  Receive Date: 20160120
  Receipt Date: 20160120
  Transmission Date: 20160526
  Serious: Yes (Hospitalization)
  Sender: FDA-Public Use
  Company Number: None

PATIENT
  Age: 76 Year
  Sex: Male
  Weight: 72.1 kg

DRUGS (2)
  1. BENDAMUSTINE HYDROCHLORIDE [Suspect]
     Active Substance: BENDAMUSTINE HYDROCHLORIDE
     Dates: end: 20151216
  2. RITUXIMAB [Suspect]
     Active Substance: RITUXIMAB
     Dates: end: 20151215

REACTIONS (8)
  - Malaise [None]
  - Pyrexia [None]
  - Bacterial infection [None]
  - Asthenia [None]
  - Productive cough [None]
  - Myalgia [None]
  - Pneumonia [None]
  - Sputum culture positive [None]

NARRATIVE: CASE EVENT DATE: 20160111
